FAERS Safety Report 13377941 (Version 1)
Quarter: 2017Q1

REPORT INFORMATION
  Report Type: Spontaneous
  Country: MX (occurrence: MX)
  Receive Date: 20170328
  Receipt Date: 20170328
  Transmission Date: 20170429
  Serious: Yes (Other)
  Sender: FDA-Public Use
  Company Number: MX-CORDEN PHARMA LATINA S.P.A.-MX-2017COR000071

PATIENT
  Age: 68 Year
  Sex: Male

DRUGS (4)
  1. ETOPOSIDE. [Suspect]
     Active Substance: ETOPOSIDE
     Indication: TESTIS CANCER
     Dosage: 400 MG, UNK
     Route: 041
     Dates: start: 19931026
  2. CYCLOPHOSPHAMIDE. [Suspect]
     Active Substance: CYCLOPHOSPHAMIDE
     Dosage: 1800 MG, ON DAY 1 AND DAY 43
     Dates: end: 19940113
  3. CYCLOPHOSPHAMIDE. [Suspect]
     Active Substance: CYCLOPHOSPHAMIDE
     Indication: TESTIS CANCER
     Dosage: 1000 MG, UNK
     Route: 041
     Dates: start: 19931026
  4. CISPLATIN. [Suspect]
     Active Substance: CISPLATIN
     Indication: TESTIS CANCER
     Dosage: 180 MG, ON DAY 1, 8, 15, 43, 50
     Dates: end: 19940113

REACTIONS (1)
  - Adenocarcinoma gastric [Unknown]
